FAERS Safety Report 6604118-4 (Version None)
Quarter: 2010Q1

REPORT INFORMATION
  Report Type: 
  Country: None (occurrence: None)
  Receive Date: 20100226
  Receipt Date: 20090520
  Transmission Date: 20100710
  Serious: No
  Sender: FDA-Public Use
  Company Number: A0787184A

PATIENT
  Sex: Female

DRUGS (2)
  1. LAMICTAL CD [Suspect]
     Indication: DEPRESSION
     Route: 048
  2. HRT [Suspect]

REACTIONS (1)
  - DRUG LEVEL BELOW THERAPEUTIC [None]
